FAERS Safety Report 10446241 (Version 2)
Quarter: 2014Q3

REPORT INFORMATION
  Report Type: Spontaneous
  Country: US (occurrence: US)
  Receive Date: 20140911
  Receipt Date: 20140911
  Transmission Date: 20150326
  Serious: Yes (Other)
  Sender: FDA-Public Use
  Company Number: US-ROCHE-1434132

PATIENT
  Age: 69 Year
  Sex: Female

DRUGS (3)
  1. KLONOPIN [Suspect]
     Active Substance: CLONAZEPAM
     Indication: BIPOLAR I DISORDER
     Route: 065
     Dates: start: 1999, end: 201407
  2. KLONOPIN [Suspect]
     Active Substance: CLONAZEPAM
     Dosage: HALF A TABLET
     Route: 065
     Dates: start: 201407
  3. KLONOPIN [Suspect]
     Active Substance: CLONAZEPAM
     Dosage: UP TO 1.0 MG EVERY 5 HOURS
     Route: 065
     Dates: start: 201408

REACTIONS (6)
  - Homicidal ideation [Recovered/Resolved]
  - Suicidal ideation [Recovered/Resolved]
  - Reaction to food colouring [Unknown]
  - Transient ischaemic attack [Recovered/Resolved]
  - Convulsion [Recovered/Resolved]
  - Bipolar disorder [Not Recovered/Not Resolved]

NARRATIVE: CASE EVENT DATE: 201408
